FAERS Safety Report 16242324 (Version 1)
Quarter: 2019Q2

REPORT INFORMATION
  Report Type: Spontaneous
  Country: US (occurrence: US)
  Receive Date: 20190426
  Receipt Date: 20190426
  Transmission Date: 20190711
  Serious: Yes (Life-Threatening, Hospitalization, Other)
  Sender: FDA-Public Use
  Company Number: US-ZYDUS-036147

PATIENT
  Age: 12 Year
  Sex: Female
  Weight: 51 kg

DRUGS (2)
  1. GLIPIZIDE. [Suspect]
     Active Substance: GLIPIZIDE
     Indication: PRODUCT USED FOR UNKNOWN INDICATION
     Dosage: GLIPIZIDE IR 10-MG TABLET (0.2 MG/KG)
     Route: 048
  2. MONTELUKAST [Concomitant]
     Active Substance: MONTELUKAST SODIUM
     Indication: ASTHMA
     Route: 065

REACTIONS (15)
  - Nausea [Recovered/Resolved]
  - Hypoglycaemic seizure [Recovered/Resolved]
  - Asthenia [Recovered/Resolved]
  - Urinary incontinence [Recovered/Resolved]
  - Wrong product administered [Unknown]
  - Hypophagia [Recovered/Resolved]
  - Product appearance confusion [Unknown]
  - Postictal paralysis [Recovered/Resolved]
  - Influenza like illness [Recovered/Resolved]
  - Hypoglycaemia [Recovered/Resolved]
  - Loss of consciousness [Recovered/Resolved]
  - Mental status changes [Recovered/Resolved]
  - Accidental exposure to product [Unknown]
  - Vomiting [Recovered/Resolved]
  - Diarrhoea [Recovered/Resolved]
